FAERS Safety Report 8563917-2 (Version None)
Quarter: 2012Q3

REPORT INFORMATION
  Report Type: 
  Country: None (occurrence: None)
  Receive Date: 20120723
  Receipt Date: 20120705
  Transmission Date: 20120928
  Serious: Yes (Hospitalization, Disabling, Other)
  Sender: FDA-Public Use
  Company Number: 2012PROUSA01627

PATIENT
  Age: 70 Year
  Sex: Male
  Weight: 88 kg

DRUGS (23)
  1. FELODIPINE [Concomitant]
  2. LISINOPRIL [Concomitant]
  3. WARFARIN SODIUM [Concomitant]
  4. PROVENGE [Suspect]
  5. ASPIRIN [Concomitant]
  6. INSULIN REGULAR (INSULIN PORCINE) [Concomitant]
  7. PROVENGE [Suspect]
  8. BICALUTAMIDE [Concomitant]
  9. LEVITRA [Concomitant]
  10. TOPROL-XL [Concomitant]
  11. TRICOR [Concomitant]
  12. VICODIN [Concomitant]
  13. LIPITOR [Concomitant]
  14. ZOMETA [Concomitant]
  15. 1) DIPHENHYDRAMINE HYDROCHLORIDE (DIPHENHYDRAMINE HYDROCHLORIDE) [Concomitant]
  16. LEVAQUIN [Concomitant]
  17. PROVENGE [Suspect]
     Indication: PROSTATE CANCER METASTATIC
     Dosage: 250 ML, SINGLE, INTRAVENOUS
     Route: 042
     Dates: start: 20120604, end: 20120604
  18. PROVENGE [Suspect]
     Indication: PROSTATE CANCER METASTATIC
     Dosage: 250 ML, SINGLE, INTRAVENOUS
     Route: 042
     Dates: start: 20120618, end: 20120618
  19. PROVENGE [Suspect]
     Indication: PROSTATE CANCER METASTATIC
     Dosage: 250 ML, SINGLE, INTRAVENOUS
     Route: 042
     Dates: start: 20120514, end: 20120524
  20. DIGOXIN [Concomitant]
  21. MULTIVITAMIN [Concomitant]
  22. CALCIUM CARBONATE [Concomitant]
  23. LANTUS [Concomitant]

REACTIONS (15)
  - SYNCOPE [None]
  - ENCEPHALOPATHY [None]
  - EJECTION FRACTION DECREASED [None]
  - TRICUSPID VALVE INCOMPETENCE [None]
  - CEREBRAL ATROPHY [None]
  - SINUS BRADYCARDIA [None]
  - ANTICOAGULATION DRUG LEVEL BELOW THERAPEUTIC [None]
  - CEREBROVASCULAR ACCIDENT [None]
  - CEREBRAL SMALL VESSEL ISCHAEMIC DISEASE [None]
  - LEFT VENTRICULAR HYPERTROPHY [None]
  - DILATATION VENTRICULAR [None]
  - ROAD TRAFFIC ACCIDENT [None]
  - DIASTOLIC DYSFUNCTION [None]
  - LEFT ATRIAL DILATATION [None]
  - ELECTROCARDIOGRAM T WAVE ABNORMAL [None]
